FAERS Safety Report 7703961-8 (Version None)
Quarter: 2011Q3

REPORT INFORMATION
  Report Type: 
  Country: None (occurrence: None)
  Receive Date: 20110823
  Receipt Date: 20110818
  Transmission Date: 20111222
  Serious: Yes (Other)
  Sender: FDA-Public Use
  Company Number: ES-ROCHE-797862

PATIENT
  Age: 52 Year
  Sex: Female

DRUGS (2)
  1. PEGASYS [Suspect]
     Indication: HEPATITIS C
     Route: 065
     Dates: start: 20110528, end: 20110601
  2. COPEGUS [Suspect]
     Indication: HEPATITIS C
     Dosage: FORM: 112 FILM COATED TABLETS
     Route: 065
     Dates: start: 20110528, end: 20110601

REACTIONS (3)
  - ANAEMIA [None]
  - RENAL FAILURE [None]
  - SEPSIS [None]
